FAERS Safety Report 18797972 (Version 2)
Quarter: 2021Q2

REPORT INFORMATION
  Report Type: Spontaneous
  Country: DE (occurrence: DE)
  Receive Date: 20210128
  Receipt Date: 20210409
  Transmission Date: 20210717
  Serious: Yes (Other)
  Sender: FDA-Public Use
  Company Number: NVSC2021DE010403

PATIENT
  Age: 39 Year
  Sex: Female

DRUGS (2)
  1. FOLIC ACID. [Concomitant]
     Active Substance: FOLIC ACID
     Indication: PROPHYLAXIS OF NEURAL TUBE DEFECT
     Dosage: 0.4 MG, QD (0.4 [MG/D])
     Route: 048
     Dates: start: 20190410, end: 20190921
  2. COLESTYRAMINE [Suspect]
     Active Substance: CHOLESTYRAMINE
     Indication: DIARRHOEA
     Dosage: 4000 MG, QD (SINCE MANY YEARS)
     Route: 065

REACTIONS (2)
  - Haemorrhage in pregnancy [Unknown]
  - Exposure during pregnancy [Recovered/Resolved]
